FAERS Safety Report 5090931-4 (Version None)
Quarter: 2006Q3

REPORT INFORMATION
  Report Type: 
  Country: None (occurrence: None)
  Receive Date: 20060823
  Receipt Date: 20060808
  Transmission Date: 20061208
  Serious: Yes (Other)
  Sender: FDA-Public Use
  Company Number: US200608001837

PATIENT
  Age: 57 Year
  Sex: Male

DRUGS (3)
  1. ZYPREXA [Suspect]
     Indication: BIPOLAR I DISORDER
     Dosage: 10 MG
  2. VENLAFAXINE HCL [Concomitant]
  3. LAMOTRIGINE [Concomitant]

REACTIONS (1)
  - NEUTROPENIA [None]
